FAERS Safety Report 11012971 (Version 1)
Quarter: 2015Q2

REPORT INFORMATION
  Report Type: Spontaneous
  Country: IN (occurrence: None)
  Receive Date: 20150409
  Receipt Date: 20150409
  Transmission Date: 20150821
  Serious: Yes (Hospitalization)
  Sender: FDA-Public Use
  Company Number: DEP_02615_2015

PATIENT
  Age: 53 Year
  Sex: Male

DRUGS (5)
  1. DICLOFENAC (DICLOFENAC) [Suspect]
     Active Substance: DICLOFENAC SODIUM
     Indication: PANCREATITIS CHRONIC
     Dosage: DF
  2. ONDANSETRON [Concomitant]
     Active Substance: ONDANSETRON
  3. ACETAMINOPHEN. [Concomitant]
     Active Substance: ACETAMINOPHEN
  4. TRAMADOL [Concomitant]
     Active Substance: TRAMADOL
  5. NORMAL SALINE [Concomitant]
     Active Substance: SODIUM CHLORIDE

REACTIONS (1)
  - Drug eruption [None]
